FAERS Safety Report 7325580-8 (Version None)
Quarter: 2011Q1

REPORT INFORMATION
  Report Type: 
  Country: None (occurrence: None)
  Receive Date: 20110302
  Receipt Date: 20110224
  Transmission Date: 20110831
  Serious: Yes (Other)
  Sender: FDA-Public Use
  Company Number: RU-BAYER-2011-017698

PATIENT
  Sex: Female

DRUGS (2)
  1. DUPHASTON [Concomitant]
     Indication: OLIGOMENORRHOEA
     Dosage: 2.5 MG, QD
     Route: 048
     Dates: start: 20100801, end: 20100801
  2. YAZ [Suspect]
     Indication: OLIGOMENORRHOEA
     Dosage: 1 DF, QD
     Route: 048
     Dates: start: 20100801

REACTIONS (3)
  - DRUG EXPOSURE DURING PREGNANCY [None]
  - ANTEPARTUM HAEMORRHAGE [None]
  - ABORTION SPONTANEOUS [None]
